FAERS Safety Report 7866103-4 (Version None)
Quarter: 2011Q4

REPORT INFORMATION
  Report Type: 
  Country: None (occurrence: None)
  Receive Date: 20111028
  Receipt Date: 20110425
  Transmission Date: 20120403
  Serious: No
  Sender: FDA-Public Use
  Company Number: US-GLAXOSMITHKLINE-A0924389A

PATIENT
  Age: 69 Year
  Sex: Female

DRUGS (13)
  1. THEOPHYLLINE [Concomitant]
  2. ALBUTEROL [Concomitant]
  3. ONE A DAY VITAMIN [Concomitant]
  4. AMLODIPINE BESYLATE [Concomitant]
  5. SYNTHROID [Concomitant]
  6. VITAMIN B-12 [Concomitant]
  7. ALEVE [Concomitant]
  8. PROMETHAZINE W/ CODEINE [Concomitant]
  9. OXYBUTYNIN CHLORIDE [Concomitant]
  10. SINGULAIR [Concomitant]
  11. PROVENTIL [Concomitant]
  12. CYCLOBENZAPRINE HCL [Concomitant]
  13. ADVAIR DISKUS 100/50 [Suspect]
     Indication: DYSPNOEA
     Dosage: 1PUFF TWICE PER DAY
     Route: 055
     Dates: start: 20101001, end: 20110503

REACTIONS (5)
  - DYSPHAGIA [None]
  - THROAT IRRITATION [None]
  - OROPHARYNGEAL PAIN [None]
  - COUGH [None]
  - DYSPNOEA [None]
